FAERS Safety Report 7798803-9 (Version None)
Quarter: 2011Q4

REPORT INFORMATION
  Report Type: 
  Country: None (occurrence: None)
  Receive Date: 20111005
  Receipt Date: 20111005
  Transmission Date: 20120403
  Serious: No
  Sender: FDA-Public Use
  Company Number: None

PATIENT
  Age: 23 Year
  Sex: Female
  Weight: 77.1115 kg

DRUGS (1)
  1. LEVAQUIN [Suspect]
     Indication: SINUSITIS
     Dosage: SHE ONLY TOOK 1 PILL - PROB. 500MG
     Dates: start: 20110831

REACTIONS (5)
  - DYSPNOEA [None]
  - LIP SWELLING [None]
  - URTICARIA [None]
  - OEDEMA PERIPHERAL [None]
  - ERYTHEMA [None]
